FAERS Safety Report 14160178 (Version 1)
Quarter: 2017Q4

REPORT INFORMATION
  Report Type: Report from Study
  Country: CO (occurrence: CO)
  Receive Date: 20171103
  Receipt Date: 20171103
  Transmission Date: 20180321
  Serious: Yes (Death, Hospitalization, Other)
  Sender: FDA-Public Use
  Company Number: PHHY2017CO038956

PATIENT
  Age: 62 Year
  Sex: Male
  Weight: 55 kg

DRUGS (2)
  1. VOTRIENT [Suspect]
     Active Substance: PAZOPANIB HYDROCHLORIDE
     Indication: RENAL CELL CARCINOMA
     Dosage: 400 MG, BID
     Route: 048
     Dates: start: 20170227
  2. VOTRIENT [Suspect]
     Active Substance: PAZOPANIB HYDROCHLORIDE
     Indication: NEOPLASM MALIGNANT

REACTIONS (8)
  - Cardiac arrest [Fatal]
  - Metastases to bone [Unknown]
  - Inflammation [Unknown]
  - Metastases to liver [Unknown]
  - Drug ineffective [Unknown]
  - Infection [Unknown]
  - Abdominal pain upper [Unknown]
  - Metastases to spine [Unknown]

NARRATIVE: CASE EVENT DATE: 20170726
